FAERS Safety Report 4497804-6 (Version None)
Quarter: 2004Q4

REPORT INFORMATION
  Report Type: 
  Country: None (occurrence: None)
  Receive Date: 20041104
  Receipt Date: 20041020
  Transmission Date: 20050328
  Serious: Yes (Life-Threatening, Disabling)
  Sender: FDA-Public Use
  Company Number: 2004IC000870

PATIENT
  Age: 72 Year
  Sex: Male

DRUGS (10)
  1. FLUOROURACIL [Suspect]
     Indication: OESOPHAGEAL CARCINOMA
     Dosage: 375 MG; INTRAVENOUS
     Route: 042
     Dates: start: 20030916, end: 20031110
  2. PARIET [Concomitant]
  3. AMOBAN [Concomitant]
  4. ALLOID [Concomitant]
  5. MUCODYNE [Concomitant]
  6. ALUMINUM HYDROXIDE AND MAGNESIUM TRISILICATE [Concomitant]
  7. AZUNOL #1 [Concomitant]
  8. PURSENNID [Concomitant]
  9. FRADIOMYCIN-GRAMICIDIN S [Concomitant]
  10. SELTOUCH [Concomitant]

REACTIONS (2)
  - INTERSTITIAL LUNG DISEASE [None]
  - PLEURAL EFFUSION [None]
